FAERS Safety Report 11913975 (Version 2)
Quarter: 2016Q2

REPORT INFORMATION
  Report Type: Report from Study
  Country: AR (occurrence: AR)
  Receive Date: 20160113
  Receipt Date: 20160414
  Transmission Date: 20160815
  Serious: Yes (Congenital Anomaly)
  Sender: FDA-Public Use
  Company Number: AR-BIOGEN-2016BI00170285

PATIENT
  Age: 7 Day
  Sex: Female
  Weight: 3 kg

DRUGS (1)
  1. AVONEX [Suspect]
     Active Substance: INTERFERON BETA-1A
     Indication: EXPOSURE VIA FATHER
     Route: 064
     Dates: start: 20140321

REACTIONS (2)
  - Cardiac disorder [Not Recovered/Not Resolved]
  - Exposure via father [Recovered/Resolved]

NARRATIVE: CASE EVENT DATE: 20151109
